FAERS Safety Report 7460407-5 (Version None)
Quarter: 2011Q2

REPORT INFORMATION
  Report Type: 
  Country: None (occurrence: None)
  Receive Date: 20110505
  Receipt Date: 20110425
  Transmission Date: 20111010
  Serious: Yes (Hospitalization)
  Sender: FDA-Public Use
  Company Number: B0586642A

PATIENT
  Sex: Female
  Weight: 48 kg

DRUGS (20)
  1. TYKERB [Suspect]
     Dosage: 1250MG PER DAY
     Route: 048
     Dates: start: 20091112, end: 20091210
  2. LOXONIN [Concomitant]
     Indication: PAIN IN EXTREMITY
     Route: 048
     Dates: start: 20090928, end: 20091009
  3. GASTER D [Concomitant]
     Indication: DUODENAL ULCER
     Route: 048
     Dates: start: 20091126, end: 20091214
  4. NOVAMINE [Concomitant]
     Indication: NAUSEA
     Route: 048
     Dates: start: 20090806, end: 20090812
  5. RIVOTRIL [Concomitant]
     Indication: PAIN IN EXTREMITY
     Route: 048
     Dates: start: 20090716
  6. CHINESE MEDICINE [Concomitant]
     Indication: NAUSEA
     Route: 048
     Dates: start: 20090806, end: 20090812
  7. XELODA [Concomitant]
     Dosage: 1500MG PER DAY
     Route: 048
     Dates: start: 20090716, end: 20090725
  8. LOPEMIN [Concomitant]
     Route: 048
     Dates: start: 20090806, end: 20090812
  9. PYDOXAL [Concomitant]
     Indication: PROPHYLAXIS
     Route: 048
     Dates: start: 20090716
  10. GASTER D [Concomitant]
     Route: 048
     Dates: start: 20090716, end: 20091009
  11. PARIET [Concomitant]
     Indication: DUODENAL ULCER
     Route: 048
     Dates: start: 20091112, end: 20091125
  12. TYKERB [Suspect]
     Dosage: 750MG PER DAY
     Route: 048
     Dates: start: 20090806, end: 20091009
  13. OXYCONTIN [Concomitant]
     Indication: PAIN IN EXTREMITY
     Route: 048
     Dates: start: 20090914
  14. NAUZELIN [Concomitant]
     Indication: NAUSEA
     Route: 048
     Dates: start: 20090928, end: 20091009
  15. XELODA [Concomitant]
     Dosage: 900MG PER DAY
     Route: 048
     Dates: start: 20090827, end: 20090909
  16. VOLTAREN [Concomitant]
     Indication: PAIN IN EXTREMITY
     Route: 048
     Dates: start: 20090716, end: 20091009
  17. TRYPTANOL [Concomitant]
     Indication: PAIN IN EXTREMITY
     Route: 048
     Dates: start: 20090716
  18. GABAPENTIN [Concomitant]
     Indication: PAIN IN EXTREMITY
     Route: 048
     Dates: start: 20090716
  19. TYKERB [Suspect]
     Indication: BREAST CANCER
     Dosage: 1250MG PER DAY
     Route: 048
     Dates: start: 20090716, end: 20090725
  20. SELBEX [Concomitant]
     Route: 048
     Dates: start: 20090928, end: 20091009

REACTIONS (2)
  - DIARRHOEA [None]
  - DRUG ERUPTION [None]
